FAERS Safety Report 20085117 (Version 1)
Quarter: 2021Q4

REPORT INFORMATION
  Report Type: Spontaneous
  Country: US (occurrence: US)
  Receive Date: 20211118
  Receipt Date: 20211118
  Transmission Date: 20220304
  Serious: Yes (Death, Other)
  Sender: FDA-Public Use
  Company Number: US-SAMSUNG BIOEPIS-SB-2021-26665

PATIENT
  Age: 70 Year
  Sex: Male

DRUGS (5)
  1. INFLIXIMAB [Suspect]
     Active Substance: INFLIXIMAB
     Indication: Myocarditis
     Dosage: 1 DOSE
     Route: 065
  2. INFLIXIMAB [Suspect]
     Active Substance: INFLIXIMAB
     Indication: Drug-induced liver injury
     Dosage: UNKNOWN
     Route: 065
  3. METHYLPREDNISOLONE [Suspect]
     Active Substance: METHYLPREDNISOLONE
     Indication: Myocarditis
     Route: 042
  4. METHYLPREDNISOLONE [Suspect]
     Active Substance: METHYLPREDNISOLONE
     Indication: Drug-induced liver injury
     Dosage: UNKNOWN
     Route: 065
  5. NIVOLUMAB [Suspect]
     Active Substance: NIVOLUMAB
     Indication: Oesophageal squamous cell carcinoma stage II
     Dosage: UNKNOWN
     Route: 065

REACTIONS (10)
  - Cardiac arrest [Fatal]
  - Disseminated varicella zoster virus infection [Fatal]
  - Hepatitis viral [Fatal]
  - Varicella zoster pneumonia [Fatal]
  - Cardiac infection [Fatal]
  - Gastroenteritis viral [Fatal]
  - Varicella zoster oesophagitis [Fatal]
  - Kidney infection [Fatal]
  - Drug-induced liver injury [Unknown]
  - Off label use [Unknown]
